FAERS Safety Report 4439579-2 (Version None)
Quarter: 2004Q3

REPORT INFORMATION
  Report Type: 
  Country: None (occurrence: None)
  Receive Date: 20040902
  Receipt Date: 20040825
  Transmission Date: 20050211
  Serious: Yes (Hospitalization)
  Sender: FDA-Public Use
  Company Number: US-BRISTOL-MYERS SQUIBB COMPANY-12682704

PATIENT
  Age: 53 Year
  Sex: Male

DRUGS (17)
  1. METFORMIN HCL [Suspect]
     Dosage: INCREASED FROM 500 MG BID
  2. LAMIVUDINE [Concomitant]
  3. ZIDOVUDINE [Concomitant]
  4. RITONAVIR [Concomitant]
  5. INDINAVIR [Concomitant]
  6. TENOFOVIR [Concomitant]
  7. TRIMETHOPRIM-SULFAMETHOXAZOLE [Concomitant]
  8. FLUCONAZOLE [Concomitant]
  9. AZITHROMYCIN [Concomitant]
  10. IBUPROFEN [Concomitant]
  11. GEMFIBROZIL [Concomitant]
  12. VALACYCLOVIR HCL [Concomitant]
  13. OXYCODONE HCL [Concomitant]
  14. ENALAPRIL [Concomitant]
  15. ATORVASTATIN [Concomitant]
  16. ASPIRIN [Concomitant]
  17. GLYBURIDE [Concomitant]

REACTIONS (3)
  - BLOOD GLUCOSE INCREASED [None]
  - DEHYDRATION [None]
  - LACTIC ACIDOSIS [None]
